FAERS Safety Report 4816075-1 (Version None)
Quarter: 2005Q4

REPORT INFORMATION
  Report Type: 
  Country: None (occurrence: None)
  Receive Date: 20051026
  Receipt Date: 20051012
  Transmission Date: 20060501
  Serious: Yes (Other)
  Sender: FDA-Public Use
  Company Number: 2005-BP-18146RO

PATIENT
  Sex: Female

DRUGS (2)
  1. BUTORPHANOL TARTRATE [Suspect]
     Dosage: 4 MG X 1 DOSE
  2. MORPHINE [Concomitant]

REACTIONS (3)
  - CONDITION AGGRAVATED [None]
  - MEDICATION ERROR [None]
  - RENAL FAILURE [None]
